FAERS Safety Report 4867929-1 (Version None)
Quarter: 2005Q4

REPORT INFORMATION
  Report Type: 
  Country: None (occurrence: None)
  Receive Date: 20051227
  Receipt Date: 20051219
  Transmission Date: 20060501
  Serious: Yes (Other)
  Sender: FDA-Public Use
  Company Number: 230003M05NOR

PATIENT
  Age: 56 Year
  Sex: Female

DRUGS (6)
  1. REBIF [Suspect]
     Indication: SECONDARY PROGRESSIVE MULTIPLE SCLEROSIS
     Dosage: 22 MCG, 1 IN 1 WEEKS
     Dates: start: 19960101
  2. REBIF [Suspect]
     Indication: SECONDARY PROGRESSIVE MULTIPLE SCLEROSIS
     Dosage: 22 MCG, 1 IN 1 WEEKS
     Dates: start: 19991018
  3. REBIF [Suspect]
     Indication: SECONDARY PROGRESSIVE MULTIPLE SCLEROSIS
     Dosage: 44 MCG, 3 IN 1 WEEKS
     Dates: start: 19991019, end: 20001201
  4. CETIPRIN (EMEPRONIUM BROMIDE) [Concomitant]
  5. CARBAMIDE CREAM (CARBAMIDE PRODUCTS) [Concomitant]
  6. BACLOFEN [Concomitant]

REACTIONS (6)
  - ALOPECIA [None]
  - BENIGN BREAST NEOPLASM [None]
  - NEOPLASM SKIN [None]
  - SKIN CANCER [None]
  - SKIN DISORDER [None]
  - SQUAMOUS CELL CARCINOMA OF SKIN [None]
